FAERS Safety Report 12049804 (Version 5)
Quarter: 2016Q2

REPORT INFORMATION
  Report Type: Spontaneous
  Country: US (occurrence: US)
  Receive Date: 20160208
  Receipt Date: 20160609
  Transmission Date: 20160815
  Serious: Yes (Other)
  Sender: FDA-Public Use
  Company Number: US-SA-2016SA020317

PATIENT
  Age: 78 Year
  Sex: Male
  Weight: 72.57 kg

DRUGS (7)
  1. LANTUS SOLOSTAR [Suspect]
     Active Substance: INSULIN GLARGINE
     Indication: DIABETES MELLITUS
     Route: 065
     Dates: start: 2006
  2. ASPIRIN. [Concomitant]
     Active Substance: ASPIRIN
  3. LOSARTAN. [Concomitant]
     Active Substance: LOSARTAN
     Dosage: STRENGTH: 50 MG
  4. HUMALOG [Concomitant]
     Active Substance: INSULIN LISPRO
     Indication: BLOOD GLUCOSE INCREASED
     Dosage: DOSE:2 UNIT(S)
  5. LANTUS SOLOSTAR [Suspect]
     Active Substance: INSULIN GLARGINE
     Indication: DIABETES MELLITUS
     Route: 065
     Dates: start: 2006
  6. ISOSORBIDE MONONITRATE. [Concomitant]
     Active Substance: ISOSORBIDE MONONITRATE
     Dosage: STRENGTH: 30 MG
  7. SOLOSTAR [Concomitant]
     Active Substance: DEVICE
     Dates: start: 2006

REACTIONS (2)
  - Blood glucose increased [Recovered/Resolved]
  - Catheterisation cardiac [Unknown]

NARRATIVE: CASE EVENT DATE: 20160118
